FAERS Safety Report 12946125 (Version 2)
Quarter: 2017Q2

REPORT INFORMATION
  Report Type: Report from Study
  Country: US (occurrence: US)
  Receive Date: 20161115
  Receipt Date: 20170406
  Transmission Date: 20170830
  Serious: Yes (Other)
  Sender: FDA-Public Use
  Company Number: US-GILEAD-2016-0240397

PATIENT
  Age: 64 Year
  Sex: Female

DRUGS (1)
  1. LEDIPASVIR/SOFOSBUVIR [Suspect]
     Active Substance: LEDIPASVIR\SOFOSBUVIR
     Indication: HEPATITIS C
     Dosage: 1 DF, QD
     Route: 048
     Dates: start: 201609, end: 201611

REACTIONS (6)
  - Fatigue [Unknown]
  - Drug interaction [Unknown]
  - Hypertension [Unknown]
  - Asthenia [Unknown]
  - Sensory loss [Unknown]
  - Malaise [Unknown]
